FAERS Safety Report 10997807 (Version 1)
Quarter: 2015Q2

REPORT INFORMATION
  Report Type: Spontaneous
  Country: CN (occurrence: CN)
  Receive Date: 20150408
  Receipt Date: 20150408
  Transmission Date: 20150821
  Serious: Yes (Death)
  Sender: FDA-Public Use
  Company Number: CN-PFIZER INC-2015116427

PATIENT
  Age: 40 Year
  Sex: Male

DRUGS (1)
  1. XALKORI [Suspect]
     Active Substance: CRIZOTINIB
     Indication: LUNG NEOPLASM MALIGNANT
     Dosage: 500 MG (2X250 MG CAPSULES), DAILY

REACTIONS (3)
  - Disease progression [Unknown]
  - Cardiac failure [Fatal]
  - Lung neoplasm malignant [Unknown]
